FAERS Safety Report 25624805 (Version 1)
Quarter: 2025Q3

REPORT INFORMATION
  Report Type: Spontaneous
  Country: JP (occurrence: JP)
  Receive Date: 20250731
  Receipt Date: 20250731
  Transmission Date: 20251021
  Serious: Yes (Other)
  Sender: UCB
  Company Number: JP-UCBJ-CD202509957UCBPHAPROD

PATIENT
  Sex: Male

DRUGS (1)
  1. FINTEPLA [Suspect]
     Active Substance: FENFLURAMINE
     Indication: Lennox-Gastaut syndrome
     Route: 048
     Dates: start: 20250115

REACTIONS (1)
  - Epilepsy [Not Recovered/Not Resolved]
